FAERS Safety Report 11746524 (Version 1)
Quarter: 2015Q4

REPORT INFORMATION
  Report Type: Spontaneous
  Country: US (occurrence: None)
  Receive Date: 20151116
  Receipt Date: 20151116
  Transmission Date: 20160304
  Serious: Yes (Death)
  Sender: FDA-Public Use
  Company Number: None

PATIENT
  Age: 77 Year
  Sex: Male

DRUGS (4)
  1. FINASTERIDE. [Concomitant]
     Active Substance: FINASTERIDE
  2. FONDAPARINUX 2.5MG MYLAN [Suspect]
     Active Substance: FONDAPARINUX
     Indication: MYELODYSPLASTIC SYNDROME
     Dosage: 2.5MG, UNDER THE SKIN
     Dates: start: 20131009, end: 20151112
  3. LOVENOX [Concomitant]
     Active Substance: ENOXAPARIN SODIUM
  4. PRAVASTATIN [Concomitant]
     Active Substance: PRAVASTATIN\PRAVASTATIN SODIUM

REACTIONS (1)
  - Death [None]

NARRATIVE: CASE EVENT DATE: 20151112
